FAERS Safety Report 4505259-8 (Version None)
Quarter: 2004Q4

REPORT INFORMATION
  Report Type: 
  Country: None (occurrence: None)
  Receive Date: 20041119
  Receipt Date: 20041116
  Transmission Date: 20050328
  Serious: Yes (Hospitalization)
  Sender: FDA-Public Use
  Company Number: US-JNJFOC-20040707048

PATIENT
  Age: 72 Year
  Sex: Female

DRUGS (7)
  1. DURAGESIC [Suspect]
     Route: 062
     Dates: start: 20040401
  2. CLONIDINE [Concomitant]
     Indication: HYPERTENSION
     Route: 049
  3. NORVASC [Concomitant]
     Indication: HYPERTENSION
     Route: 049
  4. BENICAR [Concomitant]
     Indication: HYPERTENSION
     Route: 049
  5. VALIUM [Concomitant]
     Indication: NERVOUSNESS
     Route: 049
  6. TYLENOL W/ CODEINE NO. 3 [Concomitant]
     Route: 049
  7. TYLENOL W/ CODEINE NO. 3 [Concomitant]
     Indication: PAIN
     Route: 049

REACTIONS (3)
  - FEELING JITTERY [None]
  - HYPOAESTHESIA [None]
  - TREMOR [None]
